FAERS Safety Report 17258447 (Version 3)
Quarter: 2020Q1

REPORT INFORMATION
  Report Type: Spontaneous
  Country: PK (occurrence: PK)
  Receive Date: 20200110
  Receipt Date: 20200130
  Transmission Date: 20200409
  Serious: Yes (Life-Threatening, Other)
  Sender: FDA-Public Use
  Company Number: PK-NOVOPROD-705407

PATIENT
  Age: 50 Year
  Sex: Male
  Weight: 188.97 kg

DRUGS (1)
  1. LEVEMIR [Suspect]
     Active Substance: INSULIN DETEMIR
     Indication: TYPE 2 DIABETES MELLITUS
     Dosage: 20-25 UNITS PER DAY
     Route: 058
     Dates: start: 20131230, end: 20191115

REACTIONS (2)
  - Disease progression [Recovering/Resolving]
  - Cryptogenic cirrhosis [Recovering/Resolving]
